FAERS Safety Report 6508283-9 (Version None)
Quarter: 2009Q4

REPORT INFORMATION
  Report Type: 
  Country: None (occurrence: None)
  Receive Date: 20091221
  Receipt Date: 20081104
  Transmission Date: 20100525
  Serious: No
  Sender: FDA-Public Use
  Company Number: US-ASTRAZENECA-2008UW24605

PATIENT
  Age: 74 Year
  Sex: Female
  Weight: 72.6 kg

DRUGS (2)
  1. CRESTOR [Suspect]
     Indication: BLOOD CHOLESTEROL INCREASED
     Route: 048
     Dates: start: 20080401
  2. FISH OIL [Concomitant]

REACTIONS (1)
  - BLOOD GLUCOSE INCREASED [None]
